FAERS Safety Report 16720385 (Version 3)
Quarter: 2019Q3

REPORT INFORMATION
  Report Type: Spontaneous
  Country: US (occurrence: US)
  Receive Date: 20190820
  Receipt Date: 20190903
  Transmission Date: 20191005
  Serious: Yes (Other)
  Sender: FDA-Public Use
  Company Number: US-PFIZER INC-2019353536

PATIENT
  Age: 65 Year
  Sex: Female
  Weight: 102.1 kg

DRUGS (4)
  1. EPIPEN [Suspect]
     Active Substance: EPINEPHRINE
     Indication: ARTHROPOD STING
     Dosage: 1 MG,  (IN THE MUSCLE OF LEFT ARM)
     Route: 030
     Dates: start: 20190806, end: 20190806
  2. PREDNISONE. [Suspect]
     Active Substance: PREDNISONE
     Indication: ARTHROPOD STING
     Dosage: 125 MG, UNK
     Route: 042
     Dates: start: 20190806
  3. METHYLPREDNISOLONE SODIUM SUCCINATE. [Suspect]
     Active Substance: METHYLPREDNISOLONE SODIUM SUCCINATE
     Dosage: 125 MG, UNK
     Route: 042
     Dates: start: 20190806
  4. BENADRYL [Concomitant]
     Active Substance: DIPHENHYDRAMINE HYDROCHLORIDE
     Indication: ARTHROPOD STING
     Dosage: UNK
     Dates: start: 20190806

REACTIONS (14)
  - Anxiety [Recovered/Resolved with Sequelae]
  - Metamorphopsia [Recovered/Resolved]
  - Psychotic disorder [Unknown]
  - Paranoia [Recovered/Resolved]
  - Tremor [Recovered/Resolved]
  - Overdose [Unknown]
  - Cold sweat [Recovered/Resolved]
  - Speech disorder [Recovered/Resolved]
  - Aggression [Unknown]
  - Incorrect route of product administration [Unknown]
  - Fear [Recovered/Resolved]
  - Muscle spasms [Recovered/Resolved]
  - Panic attack [Recovered/Resolved]
  - Mental disorder [Unknown]

NARRATIVE: CASE EVENT DATE: 20190806
